FAERS Safety Report 7967727-6 (Version None)
Quarter: 2011Q4

REPORT INFORMATION
  Report Type: 
  Country: None (occurrence: None)
  Receive Date: 20111209
  Receipt Date: 20111209
  Transmission Date: 20120403
  Serious: Yes (Hospitalization)
  Sender: FDA-Public Use
  Company Number: None

PATIENT
  Age: 92 Year
  Sex: Female
  Weight: 67.585 kg

DRUGS (1)
  1. PRADAXA [Suspect]
     Indication: ATRIAL FIBRILLATION
     Dosage: 75MG
     Route: 048
     Dates: start: 20110901, end: 20111204

REACTIONS (4)
  - LETHARGY [None]
  - CONFUSIONAL STATE [None]
  - FAECAL INCONTINENCE [None]
  - HAEMATOCHEZIA [None]
